FAERS Safety Report 11513543 (Version 3)
Quarter: 2015Q4

REPORT INFORMATION
  Report Type: Spontaneous
  Country: DE (occurrence: DE)
  Receive Date: 20150916
  Receipt Date: 20151013
  Transmission Date: 20160304
  Serious: Yes (Life-Threatening, Other)
  Sender: FDA-Public Use
  Company Number: DE-BAYER-2015-418903

PATIENT
  Age: 75 Year
  Sex: Male
  Weight: 95.6 kg

DRUGS (1)
  1. XOFIGO [Suspect]
     Active Substance: RADIUM RA-223 DICHLORIDE
     Indication: PROSTATE CANCER METASTATIC
     Dosage: 6 TIMES
     Route: 042
     Dates: start: 201501, end: 201506

REACTIONS (2)
  - Metastases to bone [None]
  - Thrombocytopenia [None]

NARRATIVE: CASE EVENT DATE: 201505
